FAERS Safety Report 16975576 (Version 2)
Quarter: 2019Q4

REPORT INFORMATION
  Report Type: Report from Study
  Country: JP (occurrence: JP)
  Receive Date: 20191030
  Receipt Date: 20191224
  Transmission Date: 20200122
  Serious: Yes (Death, Other)
  Sender: FDA-Public Use
  Company Number: JP-BAUSCH-BL-2019-059357

PATIENT
  Age: 62 Year
  Sex: Male
  Weight: 66 kg

DRUGS (15)
  1. ZALTRAP [Suspect]
     Active Substance: ZIV-AFLIBERCEPT
     Dosage: 1X (ONE DAY)
     Route: 041
     Dates: start: 20190408, end: 20190408
  2. IRINOTECAN [Suspect]
     Active Substance: IRINOTECAN
     Indication: COLON CANCER
     Dosage: 1X (ONE DAY)
     Route: 065
     Dates: start: 20190501, end: 20190501
  3. FLUOROURACIL. [Suspect]
     Active Substance: FLUOROURACIL
     Indication: COLON CANCER
     Route: 065
     Dates: start: 201710, end: 201902
  4. CALCIUM FOLINATE [Suspect]
     Active Substance: LEUCOVORIN CALCIUM
     Route: 065
     Dates: start: 20190225, end: 20190311
  5. CALCIUM FOLINATE [Suspect]
     Active Substance: LEUCOVORIN CALCIUM
     Dosage: 1X (ONE DAY)
     Route: 065
     Dates: start: 20190408, end: 20190408
  6. ZALTRAP [Suspect]
     Active Substance: ZIV-AFLIBERCEPT
     Indication: COLON CANCER
     Dosage: 1X (ONE DAY)
     Route: 041
     Dates: start: 20190501, end: 20190501
  7. ZALTRAP [Suspect]
     Active Substance: ZIV-AFLIBERCEPT
     Route: 041
     Dates: start: 20190225, end: 20190311
  8. CALCIUM FOLINATE [Suspect]
     Active Substance: LEUCOVORIN CALCIUM
     Indication: COLON CANCER
     Dosage: 1X (ONE DAY)
     Route: 065
     Dates: start: 20190501, end: 20190501
  9. CALCIUM FOLINATE [Suspect]
     Active Substance: LEUCOVORIN CALCIUM
     Route: 065
     Dates: start: 201710, end: 201902
  10. FLUOROURACIL. [Suspect]
     Active Substance: FLUOROURACIL
     Dosage: BOLUS: 400 MG/M2, CONTINUOUS IV DRIP: 2400 MG/M2
     Route: 042
     Dates: start: 20190225, end: 20190311
  11. IRINOTECAN [Suspect]
     Active Substance: IRINOTECAN
     Dosage: 1X (ONE DAY)
     Route: 065
     Dates: start: 20190408, end: 20190408
  12. FLUOROURACIL. [Suspect]
     Active Substance: FLUOROURACIL
     Indication: COLON CANCER
     Dosage: BOLUS: 400 MG/M2, CONTINUOUS IV DRIP: 2400 MG/M2
     Route: 042
     Dates: start: 20190501, end: 20190501
  13. IRINOTECAN [Suspect]
     Active Substance: IRINOTECAN
     Route: 065
     Dates: start: 20190225, end: 20190311
  14. FLUOROURACIL. [Suspect]
     Active Substance: FLUOROURACIL
     Dosage: BOLUS: 400 MG/M2, CONTINUOUS IV DRIP: 2400 MG/M2
     Route: 042
     Dates: start: 20190408, end: 20190408
  15. IRINOTECAN [Suspect]
     Active Substance: IRINOTECAN
     Route: 065
     Dates: start: 201710, end: 201902

REACTIONS (2)
  - Neutrophil count decreased [Not Recovered/Not Resolved]
  - White blood cell count decreased [Recovered/Resolved]

NARRATIVE: CASE EVENT DATE: 20190520
